FAERS Safety Report 7422618-4 (Version None)
Quarter: 2011Q2

REPORT INFORMATION
  Report Type: 
  Country: None (occurrence: None)
  Receive Date: 20110408
  Receipt Date: 20110328
  Transmission Date: 20111010
  Serious: Yes (Disabling)
  Sender: FDA-Public Use
  Company Number: 2011MA003260

PATIENT
  Age: 79 Year
  Sex: Male

DRUGS (8)
  1. TRAMADOL HYDROCHLORIDE [Suspect]
     Indication: PRODUCT USED FOR UNKNOWN INDICATION
     Dates: start: 20110318
  2. LISINOPRIL [Concomitant]
  3. ATENOLOL [Concomitant]
  4. ACETAMINOPHEN [Concomitant]
  5. ASPIRIN [Concomitant]
  6. ATORVASTATIN [Concomitant]
  7. IBUPROFEN [Concomitant]
  8. OMEPRAZOLE [Concomitant]

REACTIONS (3)
  - NERVOUS SYSTEM DISORDER [None]
  - CONFUSIONAL STATE [None]
  - BIOPSY PROSTATE ABNORMAL [None]
